FAERS Safety Report 4996584-5 (Version None)
Quarter: 2006Q2

REPORT INFORMATION
  Report Type: 
  Country: None (occurrence: None)
  Receive Date: 20060505
  Receipt Date: 20060420
  Transmission Date: 20061013
  Serious: Yes (Congenital Anomaly)
  Sender: FDA-Public Use
  Company Number: GXKR2006ES02242

PATIENT

DRUGS (3)
  1. TOPIRAMATE [Suspect]
     Dosage: TRANSPLACENTAL
     Route: 064
  2. FOLIC ACID [Suspect]
     Dosage: TRANSPLACENTAL
     Route: 064
  3. MULTIVITAMINS, PLAIN (NO INGREDIENTS/SUBSTANCES) [Concomitant]

REACTIONS (6)
  - CONGENITAL HAND MALFORMATION [None]
  - CONGENITAL ORAL MALFORMATION [None]
  - DRUG EXPOSURE DURING PREGNANCY [None]
  - FINGER HYPOPLASIA [None]
  - PHALANGEAL AGENESIS [None]
  - SYNDACTYLY [None]
